FAERS Safety Report 21485703 (Version 1)
Quarter: 2022Q4

REPORT INFORMATION
  Report Type: Spontaneous
  Country: US (occurrence: US)
  Receive Date: 20221020
  Receipt Date: 20221020
  Transmission Date: 20230112
  Serious: No
  Sender: FDA-Public Use
  Company Number: US-TORRENT-00012050

PATIENT
  Age: 59 Year
  Sex: Female

DRUGS (2)
  1. MONTELUKAST SODIUM [Suspect]
     Active Substance: MONTELUKAST SODIUM
     Indication: Infection
     Dosage: 10 MG TABLET ONCE A DAY EVERY EVENING
     Route: 065
     Dates: start: 20220921, end: 20220925
  2. ENTYVIO [Concomitant]
     Active Substance: VEDOLIZUMAB
     Indication: Surgery
     Route: 065

REACTIONS (5)
  - Pruritus [Recovered/Resolved]
  - Product substitution issue [Unknown]
  - Erythema [Recovered/Resolved]
  - Swelling [Recovered/Resolved]
  - Urticaria [Recovered/Resolved]

NARRATIVE: CASE EVENT DATE: 20220923
